FAERS Safety Report 10533306 (Version 2)
Quarter: 2014Q4

REPORT INFORMATION
  Report Type: Spontaneous
  Country: US (occurrence: US)
  Receive Date: 20141022
  Receipt Date: 20141022
  Transmission Date: 20150529
  Serious: No
  Sender: FDA-Public Use
  Company Number: US-TEVA-482636USA

PATIENT
  Sex: Female

DRUGS (1)
  1. METHOTREXATE [Suspect]
     Active Substance: METHOTREXATE

REACTIONS (6)
  - Fatigue [Unknown]
  - Dyspnoea [Unknown]
  - Pollakiuria [Unknown]
  - Rash [Unknown]
  - Chest pain [Unknown]
  - Pain [Unknown]
